FAERS Safety Report 18057037 (Version 1)
Quarter: 2020Q3

REPORT INFORMATION
  Report Type: Other
  Country: CA (occurrence: CA)
  Receive Date: 20200723
  Receipt Date: 20200723
  Transmission Date: 20201103
  Serious: Yes (Hospitalization)
  Sender: FDA-Public Use
  Company Number: CA-ROCHE-2645644

PATIENT
  Sex: Female

DRUGS (23)
  1. AVENTYL [Concomitant]
     Active Substance: NORTRIPTYLINE HYDROCHLORIDE
  2. ISONIAZID. [Concomitant]
     Active Substance: ISONIAZID
  3. SOLU?MEDROL [Concomitant]
     Active Substance: METHYLPREDNISOLONE SODIUM SUCCINATE
     Indication: PREMEDICATION
     Route: 042
     Dates: start: 20190604, end: 20190619
  4. ASPIRIN. [Concomitant]
     Active Substance: ASPIRIN
  5. EZETIMIBE. [Concomitant]
     Active Substance: EZETIMIBE
  6. HYDROMORPHONE [Concomitant]
     Active Substance: HYDROMORPHONE
  7. LEVEMIR [Concomitant]
     Active Substance: INSULIN DETEMIR
  8. NAPROXEN. [Concomitant]
     Active Substance: NAPROXEN
  9. TYLENOL [Concomitant]
     Active Substance: ACETAMINOPHEN
     Indication: PREMEDICATION
     Route: 048
     Dates: start: 20190604, end: 20190618
  10. VITAMIN C [Concomitant]
     Active Substance: ASCORBIC ACID
  11. PREDNISONE. [Concomitant]
     Active Substance: PREDNISONE
  12. RABEPRAZOLE [Concomitant]
     Active Substance: RABEPRAZOLE
  13. TRESIBA [Concomitant]
     Active Substance: INSULIN DEGLUDEC
  14. ZOPICLONE [Concomitant]
     Active Substance: ZOPICLONE
  15. BENADRYL [Concomitant]
     Active Substance: DIPHENHYDRAMINE HYDROCHLORIDE
     Indication: PREMEDICATION
     Route: 048
     Dates: start: 20190604, end: 20190618
  16. CANDESARTAN. [Concomitant]
     Active Substance: CANDESARTAN
  17. HUMALOG [Concomitant]
     Active Substance: INSULIN LISPRO
     Indication: DIABETES MELLITUS
  18. TYLENOL 3 (UNK INGREDIENTS) [Concomitant]
  19. ACETYLSALICYLIC ACID [Concomitant]
     Active Substance: ASPIRIN
  20. ROSUVASTATIN. [Concomitant]
     Active Substance: ROSUVASTATIN
  21. SALBUTAMOL [Concomitant]
     Active Substance: ALBUTEROL
  22. TOCILIZUMAB. [Suspect]
     Active Substance: TOCILIZUMAB
     Indication: PRODUCT USED FOR UNKNOWN INDICATION
     Route: 058
     Dates: start: 20200616, end: 20200616
  23. METHOTREXATE. [Concomitant]
     Active Substance: METHOTREXATE

REACTIONS (5)
  - Swelling [Unknown]
  - Eye disorder [Unknown]
  - Hypersensitivity [Unknown]
  - Rash [Unknown]
  - Candida infection [Unknown]
